FAERS Safety Report 8260893-7 (Version None)
Quarter: 2012Q2

REPORT INFORMATION
  Report Type: 
  Country: None (occurrence: None)
  Receive Date: 20120402
  Receipt Date: 20120323
  Transmission Date: 20120825
  Serious: Yes (Other)
  Sender: FDA-Public Use
  Company Number: 2012-030663

PATIENT
  Age: 71 Year
  Sex: Male
  Weight: 90.7 kg

DRUGS (6)
  1. XARELTO [Suspect]
     Indication: ATRIAL FIBRILLATION
     Dosage: 20 MG, HS, ORAL
     Route: 048
     Dates: start: 20120319
  2. ASPIRIN [Suspect]
     Indication: ISCHAEMIC HEART DISEASE PROPHYLAXIS
     Dosage: 80 MG, HS, ORAL
     Route: 048
  3. DIGOXIN [Concomitant]
  4. SIMVASTATIN [Concomitant]
  5. MVI (MVI {VITAMINS NOS]) [Concomitant]
  6. CARVEDILOL [Concomitant]

REACTIONS (1)
  - BLOOD URINE PRESENT [None]
